FAERS Safety Report 10242993 (Version 1)
Quarter: 2014Q2

REPORT INFORMATION
  Report Type: Spontaneous
  Country: US (occurrence: US)
  Receive Date: 20140618
  Receipt Date: 20140618
  Transmission Date: 20141212
  Serious: No
  Sender: FDA-Public Use
  Company Number: US-B.I. PHARMACEUTICALS,INC./RIDGEFIELD-2014-BI-25611BP

PATIENT
  Age: 70 Year
  Sex: Female

DRUGS (40)
  1. MOBIC [Suspect]
     Indication: PRODUCT USED FOR UNKNOWN INDICATION
     Route: 065
     Dates: start: 20071001
  2. LEVOTHYROXINE [Concomitant]
     Indication: THYROID DISORDER
     Dosage: 88 MG
     Route: 065
     Dates: start: 1998
  3. FUROSEMIDE [Concomitant]
     Indication: DIURETIC THERAPY
     Dosage: DOSE PER APPLICATION AND DAILY DOSE: ROTATE 40/60
     Route: 065
     Dates: start: 1998
  4. OXYCODONE [Concomitant]
     Indication: BACK PAIN
     Dosage: DOSE PER APPLICATION AND DAILY DOSE: 10-325
     Route: 065
     Dates: start: 20120816
  5. MORPHINE [Concomitant]
     Indication: BACK PAIN
     Dosage: 60 MG
     Route: 065
     Dates: start: 20130815
  6. GLIMEPIRIDE [Concomitant]
     Indication: DIABETES MELLITUS
     Dosage: 1 MG
     Route: 065
  7. PREDNISONE [Concomitant]
     Indication: LUNG DISORDER
     Dosage: 5 MG
     Route: 065
     Dates: start: 20120125
  8. PREDNISONE [Concomitant]
     Indication: PAIN
  9. ATENOLOL [Concomitant]
     Indication: CARDIAC DISORDER
     Dosage: 25 MG
     Route: 065
     Dates: start: 1998
  10. ATENOLOL [Concomitant]
     Indication: CEREBROVASCULAR ACCIDENT
  11. ATENOLOL [Concomitant]
     Indication: BLOOD PRESSURE
  12. EXCEDRIN [Concomitant]
     Indication: ANTICOAGULANT THERAPY
     Route: 065
     Dates: start: 201312
  13. EXCEDRIN [Concomitant]
     Indication: ANALGESIC THERAPY
  14. IPRATROPIUM BROMIDE [Concomitant]
     Indication: RHINORRHOEA
     Dosage: 1 PUF
     Route: 065
     Dates: start: 201401
  15. METFORMIN [Concomitant]
     Indication: TYPE 2 DIABETES MELLITUS
     Dosage: 1000 MG
     Route: 065
     Dates: start: 2010
  16. ADVAIR [Concomitant]
     Indication: CHRONIC OBSTRUCTIVE PULMONARY DISEASE
     Dosage: DOSE PER APPLICATION AND DAILY DOSE: 500/50
     Route: 065
     Dates: start: 2000
  17. ADVAIR [Concomitant]
     Indication: ASTHMA
     Dosage: FORMULATION: INHALATION POWDER; DOSE PER APPLICATION/DAILY DOSE: 500/50MCG
     Route: 065
     Dates: start: 20110805
  18. ADVAIR [Concomitant]
     Indication: BRONCHITIS
  19. FERROUS SULFATE [Concomitant]
     Indication: MINERAL SUPPLEMENTATION
     Dosage: 325 MG
     Route: 065
     Dates: start: 2013
  20. VENLAFAXINE [Concomitant]
     Indication: ANTIDEPRESSANT THERAPY
     Dosage: 75 MG
     Route: 065
  21. VENLAFAXINE [Concomitant]
     Indication: SEROTONIN SYNDROME
  22. LEVALBUTEROL [Concomitant]
     Indication: INHALATION THERAPY
     Dosage: DOSE PER APPLICATION AND DAILY DOSE: 1.25 MG/3 MI
     Route: 065
     Dates: start: 2012
  23. SIMVASTATIN [Concomitant]
     Indication: BLOOD CHOLESTEROL
     Dosage: 20 MG
     Route: 065
     Dates: start: 1998
  24. SIMVASTATIN [Concomitant]
     Indication: BLOOD TRIGLYCERIDES
  25. PRO AIR [Concomitant]
     Indication: INHALATION THERAPY
     Dosage: 45 MCG
     Route: 065
     Dates: start: 1998
  26. OXYGEN [Concomitant]
     Indication: CHRONIC OBSTRUCTIVE PULMONARY DISEASE
     Dosage: DOSE PER APPLICATION AND DAILY DOSE: 2-3 LITER
     Route: 065
     Dates: start: 2010
  27. OXYGEN [Concomitant]
     Indication: EMPHYSEMA
  28. OXYGEN [Concomitant]
     Indication: BRONCHITIS
  29. WOMENS MULTI-VITAMIN [Concomitant]
     Indication: SUPPLEMENTATION THERAPY
     Route: 065
     Dates: start: 2012
  30. CALCIUM [Concomitant]
     Indication: MINERAL SUPPLEMENTATION
     Dosage: 1200 MG
     Route: 065
     Dates: start: 201302
  31. MAGNESIUM [Concomitant]
     Indication: SUPPLEMENTATION THERAPY
     Dosage: 250 MG
     Route: 065
     Dates: start: 201211
  32. B-12 [Concomitant]
     Indication: SUPPLEMENTATION THERAPY
     Dosage: 1000 MCG
     Route: 065
     Dates: start: 201310
  33. B-6 [Concomitant]
     Indication: SUPPLEMENTATION THERAPY
     Dosage: 100 MG
     Route: 065
     Dates: start: 2013
  34. D-3 [Concomitant]
     Indication: SUPPLEMENTATION THERAPY
     Dosage: 1000 U
     Route: 065
     Dates: start: 2013
  35. GLUCOSAMINE CHONDROITIN [Concomitant]
     Indication: SUPPLEMENTATION THERAPY
     Dosage: 3200 RT
     Route: 065
     Dates: start: 201312
  36. ATARAC [Concomitant]
     Indication: HALLUCINATION
     Route: 065
  37. MIRAPAC [Concomitant]
     Indication: MYOCLONUS
     Route: 065
     Dates: start: 201210
  38. METOCLOPRAMIDE [Concomitant]
     Indication: PRURITUS
     Route: 065
     Dates: start: 20130201
  39. METOCLOPRAMIDE [Concomitant]
     Indication: PRURITUS
  40. JANUVA [Concomitant]
     Indication: BLOOD COUNT
     Route: 065
     Dates: start: 201401

REACTIONS (1)
  - Renal failure [Unknown]
